FAERS Safety Report 7653035-X (Version None)
Quarter: 2011Q3

REPORT INFORMATION
  Report Type: 
  Country: None (occurrence: None)
  Receive Date: 20110803
  Receipt Date: 20110725
  Transmission Date: 20111222
  Serious: Yes (Other)
  Sender: FDA-Public Use
  Company Number: CH-ROCHE-792719

PATIENT
  Age: 58 Year
  Sex: Female

DRUGS (13)
  1. DOMPERIDONE [Concomitant]
  2. SULFAMETHOXAZOLE AND TRIMETHOPRIM [Suspect]
     Dosage: 800/160 MG THREE TIMES  A WEEK.
     Route: 065
  3. ITRACONAZOLE [Concomitant]
  4. AMPHOTERICIN B [Concomitant]
  5. VALGANCICLOVIR [Concomitant]
  6. PREDNISONE [Suspect]
     Dosage: 10 / 7.5 MG DAILY. ON ALTERNATING DAYS.
     Route: 065
  7. VITAMIN D [Concomitant]
  8. MAGNESIUM [Concomitant]
  9. METAMIZOLE CALCIUM [Concomitant]
     Dosage: UP TO FOUR TIMES A DAY.
  10. MYCOPHENOLATE MOFETIL [Suspect]
     Dosage: 720- 360 MG DAILY. ON ALTERNATING DAYS.
     Route: 065
  11. OMEPRAZOLE [Concomitant]
  12. VALACICLOVIR [Concomitant]
  13. CALCIUM ACETATE [Concomitant]

REACTIONS (2)
  - PHOTOSENSITIVITY REACTION [None]
  - URINARY TRACT INFECTION [None]
